FAERS Safety Report 9477937 (Version 2)
Quarter: 2013Q3

REPORT INFORMATION
  Report Type: Spontaneous
  Country: JP (occurrence: JP)
  Receive Date: 20130827
  Receipt Date: 20130920
  Transmission Date: 20140515
  Serious: Yes (Life-Threatening, Hospitalization)
  Sender: FDA-Public Use
  Company Number: JP-009507513-1308JPN011093

PATIENT
  Age: 52 Year
  Sex: Male
  Weight: 65 kg

DRUGS (3)
  1. BRIDION INTRAVENOUS 200MG [Suspect]
     Indication: NEUROMUSCULAR BLOCKADE REVERSAL
     Dosage: DAILY DOSE: 200 MG
     Route: 042
     Dates: start: 20130821, end: 20130821
  2. ESLAX INTRAVENOUS 50MG/5.0ML [Concomitant]
     Indication: NEUROMUSCULAR BLOCKING THERAPY
     Dosage: 50 MG, QD
     Route: 042
     Dates: start: 20130821, end: 20130821
  3. FLUMARIN [Concomitant]
     Dosage: 1 G, QD
     Route: 051
     Dates: start: 20130821, end: 20130821

REACTIONS (5)
  - Anaphylactic shock [Recovering/Resolving]
  - Pulmonary oedema [Recovering/Resolving]
  - Blood pressure decreased [Recovering/Resolving]
  - Airway peak pressure increased [Recovering/Resolving]
  - Cardiac failure [Recovering/Resolving]
